FAERS Safety Report 6943369-6 (Version None)
Quarter: 2010Q3

REPORT INFORMATION
  Report Type: 
  Country: None (occurrence: None)
  Receive Date: 20100826
  Receipt Date: 20100824
  Transmission Date: 20110219
  Serious: Yes (Death, Hospitalization)
  Sender: FDA-Public Use
  Company Number: US-CEPHALON-2010003857

PATIENT
  Sex: Male
  Weight: 88 kg

DRUGS (10)
  1. TREANDA [Suspect]
     Indication: LYMPHOMA
     Route: 042
     Dates: start: 20100511, end: 20100512
  2. RITUXAN [Concomitant]
     Indication: LYMPHOMA
     Dates: start: 20100511, end: 20100511
  3. ALDACTONE [Concomitant]
  4. ASPIRIN [Concomitant]
  5. COREG [Concomitant]
  6. COUMADIN [Concomitant]
  7. LASIX [Concomitant]
  8. LORTAB [Concomitant]
  9. NORVASC [Concomitant]
  10. PLAVIX [Concomitant]

REACTIONS (4)
  - ABSCESS [None]
  - DEATH [None]
  - RASH [None]
  - STAPHYLOCOCCAL INFECTION [None]
